FAERS Safety Report 12959275 (Version 1)
Quarter: 2016Q4

REPORT INFORMATION
  Report Type: Spontaneous
  Country: CH (occurrence: CH)
  Receive Date: 20161121
  Receipt Date: 20161121
  Transmission Date: 20170207
  Serious: Yes (Life-Threatening, Hospitalization)
  Sender: FDA-Public Use
  Company Number: CH-ROCHE-1855770

PATIENT
  Age: 15 Year
  Sex: Male
  Weight: 42 kg

DRUGS (9)
  1. RIVOTRIL [Suspect]
     Active Substance: CLONAZEPAM
     Indication: PARTIAL SEIZURES
     Route: 048
  2. PHENHYDAN [Interacting]
     Active Substance: PHENYTOIN
     Indication: PARTIAL SEIZURES
     Route: 048
     Dates: end: 20161011
  3. ORFIRIL [Interacting]
     Active Substance: VALPROIC ACID
     Dosage: DOSE INCREASED
     Route: 048
  4. MEROPENEM TRIHYDRATE [Interacting]
     Active Substance: MEROPENEM
     Indication: SKIN INFECTION
     Dosage: REPORTED AS MEROPENEM LABATEC
     Route: 040
     Dates: start: 20161002, end: 20161011
  5. NEXIUM [Concomitant]
     Active Substance: ESOMEPRAZOLE MAGNESIUM
     Route: 048
  6. RIFAMPICIN [Interacting]
     Active Substance: RIFAMPIN
     Indication: SKIN INFECTION
     Dosage: REPORTED AS RIFAMPICIN LABATEC
     Route: 040
     Dates: start: 20161002, end: 20161011
  7. ORFIRIL [Interacting]
     Active Substance: VALPROIC ACID
     Indication: PARTIAL SEIZURES
     Route: 048
  8. FYCOMPA [Interacting]
     Active Substance: PERAMPANEL
     Indication: PARTIAL SEIZURES
     Route: 048
  9. VANCOMYCIN [Concomitant]
     Active Substance: VANCOMYCIN
     Route: 040
     Dates: start: 20161002

REACTIONS (3)
  - Epilepsy [Recovered/Resolved]
  - Drug interaction [Unknown]
  - Drug level decreased [Recovered/Resolved]

NARRATIVE: CASE EVENT DATE: 20161002
